FAERS Safety Report 8221783-9 (Version None)
Quarter: 2012Q1

REPORT INFORMATION
  Report Type: 
  Country: None (occurrence: None)
  Receive Date: 20120320
  Receipt Date: 20120320
  Transmission Date: 20120608
  Serious: Yes (Other)
  Sender: FDA-Public Use
  Company Number: None

PATIENT
  Age: 66 Year
  Sex: Female
  Weight: 71.214 kg

DRUGS (1)
  1. CIPROFLOXACIN [Suspect]
     Indication: TOOTH INFECTION
     Dosage: 1 TABLET
     Route: 048
     Dates: start: 20120315, end: 20120317

REACTIONS (4)
  - TACHYCARDIA [None]
  - PARANOIA [None]
  - ARTHRALGIA [None]
  - CHEST PAIN [None]
